FAERS Safety Report 5798507-8 (Version None)
Quarter: 2008Q3

REPORT INFORMATION
  Report Type: 
  Country: None (occurrence: None)
  Receive Date: 20080702
  Receipt Date: 20080625
  Transmission Date: 20090109
  Serious: Yes (Hospitalization)
  Sender: FDA-Public Use
  Company Number: JP-MERCK-0806USA09004

PATIENT
  Age: 60 Year
  Sex: Female

DRUGS (6)
  1. DECADRON SRC [Suspect]
     Indication: MULTIPLE MYELOMA
     Route: 048
     Dates: start: 20070101
  2. ONCOVIN [Concomitant]
     Indication: MULTIPLE MYELOMA
     Route: 042
     Dates: start: 20070101
  3. DOXORUBICIN HYDROCHLORIDE [Concomitant]
     Indication: MULTIPLE MYELOMA
     Route: 042
     Dates: start: 20070101
  4. ENDOXAN [Suspect]
     Indication: MULTIPLE MYELOMA
     Route: 065
     Dates: start: 20070101
  5. ALKERAN [Suspect]
     Indication: MULTIPLE MYELOMA
     Route: 065
     Dates: start: 20070409, end: 20070411
  6. LAMIVUDINE [Concomitant]
     Indication: ANTIVIRAL PROPHYLAXIS
     Route: 048
     Dates: start: 20070412, end: 20070901

REACTIONS (1)
  - HEPATITIS B [None]
